FAERS Safety Report 8354563-4 (Version None)
Quarter: 2012Q2

REPORT INFORMATION
  Report Type: 
  Country: None (occurrence: None)
  Receive Date: 20120511
  Receipt Date: 20120503
  Transmission Date: 20120825
  Serious: Yes (Other)
  Sender: FDA-Public Use
  Company Number: US-AMGEN-USASP2012028091

PATIENT
  Age: 55 Year
  Sex: Female

DRUGS (10)
  1. VITAMIN B COMPLEX CAP [Concomitant]
     Dosage: UNK
  2. VITAMIN D [Concomitant]
     Dosage: UNK
  3. ULTRAM [Concomitant]
     Dosage: UNK
  4. CALCARB [Concomitant]
     Dosage: UNK
  5. METOPROLOL TARTRATE [Concomitant]
     Dosage: UNK
  6. ENBREL [Suspect]
     Indication: RHEUMATOID ARTHRITIS
     Dosage: 50 MG, QWK
     Dates: start: 20120201
  7. ARAVA [Concomitant]
  8. METHOTREXATE [Concomitant]
     Dosage: UNK
  9. FOLIC ACID [Concomitant]
     Dosage: UNK
  10. METHYLPREDNISOLONE [Concomitant]
     Dosage: UNK

REACTIONS (5)
  - EAR INFECTION [None]
  - CHILLS [None]
  - PYREXIA [None]
  - ABASIA [None]
  - PAIN [None]
